FAERS Safety Report 9263282 (Version 1)
Quarter: 2013Q2

REPORT INFORMATION
  Report Type: Spontaneous
  Country: US (occurrence: None)
  Receive Date: 20130429
  Receipt Date: 20130429
  Transmission Date: 20140414
  Serious: No
  Sender: FDA-Public Use
  Company Number: None

PATIENT
  Age: 40 Year
  Sex: Female
  Weight: 70.31 kg

DRUGS (1)
  1. SIMVASTATIN [Suspect]
     Indication: BLOOD CHOLESTEROL INCREASED
     Dosage: 1 PILL 1/DAY
     Dates: start: 20130212

REACTIONS (5)
  - Body mass index decreased [None]
  - Hormone level abnormal [None]
  - Breast atrophy [None]
  - Ocular hyperaemia [None]
  - Eye disorder [None]
